FAERS Safety Report 26194586 (Version 1)
Quarter: 2025Q4

REPORT INFORMATION
  Report Type: Spontaneous
  Country: US (occurrence: US)
  Receive Date: 20251224
  Receipt Date: 20251224
  Transmission Date: 20260117
  Serious: Yes (Life-Threatening, Hospitalization, Other)
  Sender: HETERO
  Company Number: US-AMAROX PHARMA-HET2025US07784

PATIENT
  Age: 79 Year
  Sex: Male

DRUGS (1)
  1. METFORMIN [Suspect]
     Active Substance: METFORMIN HYDROCHLORIDE
     Indication: Type 2 diabetes mellitus
     Dosage: 1000 MILLIGRAM, BID
     Route: 065

REACTIONS (4)
  - Acute kidney injury [Unknown]
  - Hyperkalaemia [Unknown]
  - Lactic acidosis [Recovering/Resolving]
  - Respiratory distress [Unknown]
